FAERS Safety Report 5271950-1 (Version None)
Quarter: 2007Q1

REPORT INFORMATION
  Report Type: 
  Country: None (occurrence: None)
  Receive Date: 20061219
  Receipt Date: 20060919
  Transmission Date: 20070707
  Serious: Yes (Other)
  Sender: FDA-Public Use
  Company Number: US-JNJFOC-20060105224

PATIENT
  Sex: Female
  Weight: 75.7507 kg

DRUGS (6)
  1. ORTHO EVRA [Suspect]
     Indication: DRUG USE FOR UNKNOWN INDICATION
     Dosage: TRANSDERMAL
     Route: 062
     Dates: start: 20040601, end: 20051202
  2. CLARITIN [Concomitant]
  3. NAPROXEN [Concomitant]
  4. DARVOCET [Concomitant]
  5. PROZAC [Concomitant]
  6. EFFEXOR [Concomitant]

REACTIONS (7)
  - ABDOMINAL PAIN [None]
  - BRONCHITIS [None]
  - CHEST PAIN [None]
  - DEEP VEIN THROMBOSIS [None]
  - PAIN IN EXTREMITY [None]
  - TEMPOROMANDIBULAR JOINT SYNDROME [None]
  - TENSION HEADACHE [None]
